FAERS Safety Report 5486706-4 (Version None)
Quarter: 2007Q3

REPORT INFORMATION
  Report Type: 
  Country: None (occurrence: None)
  Receive Date: 20070924
  Receipt Date: 20070529
  Transmission Date: 20080115
  Serious: Yes (Hospitalization, Other)
  Sender: FDA-Public Use
  Company Number: 2007044370

PATIENT
  Sex: Female

DRUGS (1)
  1. DILANTIN [Suspect]
     Indication: CONVULSION
     Dates: start: 20010401

REACTIONS (2)
  - STEVENS-JOHNSON SYNDROME [None]
  - THERAPEUTIC AGENT TOXICITY [None]
